FAERS Safety Report 8574845-0 (Version None)
Quarter: 2012Q3

REPORT INFORMATION
  Report Type: 
  Country: None (occurrence: None)
  Receive Date: 20120807
  Receipt Date: 20120726
  Transmission Date: 20120928
  Serious: Yes (Other)
  Sender: FDA-Public Use
  Company Number: CZ-009507513-1208CZE002124

PATIENT

DRUGS (3)
  1. IFOSFAMIDE [Concomitant]
  2. EMEND [Suspect]
     Indication: PROPHYLAXIS OF NAUSEA AND VOMITING
     Route: 048
  3. CORTICOSTEROIDS (UNSPECIFIED) [Concomitant]

REACTIONS (1)
  - ACUTE PSYCHOSIS [None]
